FAERS Safety Report 24220616 (Version 1)
Quarter: 2024Q3

REPORT INFORMATION
  Report Type: Report from Study
  Country: GB (occurrence: None)
  Receive Date: 20240818
  Receipt Date: 20240818
  Transmission Date: 20241017
  Serious: Yes (Other)
  Sender: ASTRAZENECA
  Company Number: 2022A294075

PATIENT

DRUGS (1)
  1. CALQUENCE [Suspect]
     Active Substance: ACALABRUTINIB
     Route: 048

REACTIONS (5)
  - Cardiotoxicity [Unknown]
  - Cytopenia [Unknown]
  - Anaemia [Unknown]
  - Diarrhoea [Unknown]
  - Haemorrhage [Unknown]
